FAERS Safety Report 24830985 (Version 4)
Quarter: 2025Q1

REPORT INFORMATION
  Report Type: Report from Study
  Country: CA (occurrence: CA)
  Receive Date: 20250110
  Receipt Date: 20250305
  Transmission Date: 20250409
  Serious: Yes (Life-Threatening, Hospitalization, Other)
  Sender: LEO PHARM
  Company Number: CA-LEO Pharma-376090

PATIENT
  Age: 19 Year

DRUGS (18)
  1. ADBRY [Suspect]
     Active Substance: TRALOKINUMAB-LDRM
     Indication: Dermatitis atopic
     Dosage: MAINTENANCE DOSE?PRODUCT FORMAT: 300MG/2ML PRE-FILLED PEN
     Route: 058
     Dates: end: 202412
  2. ADBRY [Suspect]
     Active Substance: TRALOKINUMAB-LDRM
     Indication: Dermatitis atopic
     Dosage: MAINTENANCE DOSE?PRODUCT FORMAT: 300MG/2ML PRE-FILLED PEN
     Route: 058
     Dates: end: 202412
  3. ADBRY [Suspect]
     Active Substance: TRALOKINUMAB-LDRM
     Indication: Dermatitis atopic
     Dosage: MAINTENANCE DOSE?PRODUCT FORMAT: 300MG/2ML PRE-FILLED PEN
     Route: 058
     Dates: end: 202412
  4. ADBRY [Suspect]
     Active Substance: TRALOKINUMAB-LDRM
     Indication: Dermatitis atopic
     Dosage: MAINTENANCE DOSE?PRODUCT FORMAT: 300MG/2ML PRE-FILLED PEN
     Route: 058
     Dates: end: 202412
  5. ADBRY [Suspect]
     Active Substance: TRALOKINUMAB-LDRM
     Indication: Dermatitis atopic
     Dosage: MAINTENANCE DOSE?PRODUCT FORMAT: 300MG/2ML PRE-FILLED PEN
     Route: 058
     Dates: end: 202412
  6. ADBRY [Suspect]
     Active Substance: TRALOKINUMAB-LDRM
     Indication: Dermatitis atopic
     Dosage: MAINTENANCE DOSE?PRODUCT FORMAT: 300MG/2ML PRE-FILLED PEN
     Route: 058
     Dates: end: 202412
  7. ADBRY [Suspect]
     Active Substance: TRALOKINUMAB-LDRM
     Indication: Dermatitis atopic
     Route: 058
     Dates: start: 20241030, end: 20241030
  8. ADBRY [Suspect]
     Active Substance: TRALOKINUMAB-LDRM
     Indication: Dermatitis atopic
     Route: 058
     Dates: start: 20241030, end: 20241030
  9. ADBRY [Suspect]
     Active Substance: TRALOKINUMAB-LDRM
     Indication: Dermatitis atopic
     Route: 058
     Dates: start: 20241030, end: 20241030
  10. ADBRY [Suspect]
     Active Substance: TRALOKINUMAB-LDRM
     Indication: Dermatitis atopic
     Route: 058
     Dates: start: 20241030, end: 20241030
  11. ADBRY [Suspect]
     Active Substance: TRALOKINUMAB-LDRM
     Indication: Dermatitis atopic
     Route: 058
     Dates: start: 20241030, end: 20241030
  12. ADBRY [Suspect]
     Active Substance: TRALOKINUMAB-LDRM
     Indication: Dermatitis atopic
     Route: 058
     Dates: start: 20241030, end: 20241030
  13. ADBRY [Suspect]
     Active Substance: TRALOKINUMAB-LDRM
     Indication: Dermatitis atopic
     Dates: start: 20250217
  14. ADBRY [Suspect]
     Active Substance: TRALOKINUMAB-LDRM
     Indication: Dermatitis atopic
     Dates: start: 20250217
  15. ADBRY [Suspect]
     Active Substance: TRALOKINUMAB-LDRM
     Indication: Dermatitis atopic
     Dates: start: 20250217
  16. ADBRY [Suspect]
     Active Substance: TRALOKINUMAB-LDRM
     Indication: Dermatitis atopic
     Dates: start: 20250217
  17. ADBRY [Suspect]
     Active Substance: TRALOKINUMAB-LDRM
     Indication: Dermatitis atopic
     Dates: start: 20250217
  18. ADBRY [Suspect]
     Active Substance: TRALOKINUMAB-LDRM
     Indication: Dermatitis atopic
     Dates: start: 20250217

REACTIONS (15)
  - Cholelithiasis [Unknown]
  - Obstructive pancreatitis [Unknown]
  - Bedridden [Unknown]
  - Eye infection [Unknown]
  - Asthenia [Unknown]
  - Post-tussive vomiting [Unknown]
  - Intestinal haemorrhage [Recovered/Resolved]
  - Hypoxia [Unknown]
  - Anaphylactic reaction [Unknown]
  - Haematochezia [Recovered/Resolved]
  - Pneumonia [Unknown]
  - Insomnia [Unknown]
  - Fatigue [Unknown]
  - Aspiration [Unknown]
  - Memory impairment [Unknown]

NARRATIVE: CASE EVENT DATE: 20240101
